FAERS Safety Report 6770723-8 (Version None)
Quarter: 2010Q2

REPORT INFORMATION
  Report Type: 
  Country: None (occurrence: None)
  Receive Date: 20100615
  Receipt Date: 20100601
  Transmission Date: 20101027
  Serious: Yes (Hospitalization)
  Sender: FDA-Public Use
  Company Number: DE-B.I. PHARMACEUTICALS,INC./RIDGEFIELD-2010-DE-03001DE

PATIENT
  Age: 57 Year
  Sex: Male
  Weight: 91 kg

DRUGS (7)
  1. VIRAMUNE [Suspect]
     Indication: HIV INFECTION
     Dosage: 400 MG
     Route: 048
     Dates: start: 20000501
  2. METOPROLOL SUCCINATE [Suspect]
     Indication: CORONARY ARTERY DISEASE
     Dosage: 95 MG
     Route: 048
     Dates: start: 20000101
  3. METOPROLOL SUCCINATE [Suspect]
     Indication: HYPERTENSION
  4. DELIX [Suspect]
     Indication: CORONARY ARTERY DISEASE
     Dosage: 5 MG
     Route: 048
     Dates: start: 20000101
  5. DELIX [Suspect]
     Indication: HYPERTENSION
  6. PRAVASTATIN [Suspect]
     Indication: HYPERCHOLESTEROLAEMIA
     Dosage: 40 MG
     Route: 048
     Dates: start: 20100527
  7. TRUVADA [Concomitant]
     Indication: HIV INFECTION
     Dosage: 300/200 MG
     Route: 048
     Dates: start: 20050627

REACTIONS (5)
  - CORONARY ARTERY DISEASE [None]
  - CORONARY ARTERY STENOSIS [None]
  - OSTEONECROSIS [None]
  - ROTATOR CUFF SYNDROME [None]
  - UMBILICAL HERNIA [None]
